FAERS Safety Report 18342601 (Version 3)
Quarter: 2021Q4

REPORT INFORMATION
  Report Type: Report from Study
  Country: DE (occurrence: None)
  Receive Date: 20201005
  Receipt Date: 20211122
  Transmission Date: 20220303
  Serious: Yes (Hospitalization)
  Sender: FDA-Public Use
  Company Number: DE-ROCHE-2686479

PATIENT
  Age: 72 Year
  Sex: Female
  Weight: 70 kg

DRUGS (1)
  1. OBINUTUZUMAB [Suspect]
     Active Substance: OBINUTUZUMAB
     Indication: Follicular lymphoma
     Dosage: DATE OF LAST ADMINISTRATION PRIOR TO TO SAE ONSET ON 22/SEP/2020 (CYCLE 1)?1000MG FLAT I.V. ON WEEK
     Route: 042
     Dates: start: 20200922

REACTIONS (1)
  - Cytokine release syndrome [Recovered/Resolved]

NARRATIVE: CASE EVENT DATE: 20200923
